FAERS Safety Report 7641291-3 (Version None)
Quarter: 2011Q3

REPORT INFORMATION
  Report Type: 
  Country: None (occurrence: None)
  Receive Date: 20110728
  Receipt Date: 20110728
  Transmission Date: 20111222
  Serious: Yes (Hospitalization)
  Sender: FDA-Public Use
  Company Number: US-JNJFOC-20110503814

PATIENT
  Sex: Female
  Weight: 100.7 kg

DRUGS (10)
  1. LEVAQUIN [Suspect]
     Dosage: FOR 9 DAYS
     Route: 048
     Dates: start: 20090901, end: 20090901
  2. CHOLESTEROL MEDICATION [Concomitant]
     Indication: BLOOD CHOLESTEROL INCREASED
     Route: 048
  3. PROZAC [Concomitant]
     Route: 048
  4. ATENOLOL [Concomitant]
     Route: 065
  5. SIMVASTATIN [Concomitant]
     Route: 065
  6. LEVAQUIN [Suspect]
     Indication: PNEUMONIA
     Route: 048
     Dates: start: 20090601
  7. LEVAQUIN [Suspect]
     Dosage: FOR 9 DAYS
     Route: 048
     Dates: start: 20090901, end: 20090901
  8. HYPERTENSION MEDICATION [Concomitant]
     Indication: HYPERTENSION
     Route: 048
  9. LEVAQUIN [Suspect]
     Indication: ABDOMINAL ABSCESS
     Route: 048
     Dates: start: 20090601
  10. MOTRIN [Concomitant]
     Dosage: OR AS NECESSARY
     Route: 065

REACTIONS (3)
  - BURSITIS [None]
  - ABDOMINAL ABSCESS [None]
  - TENDONITIS [None]
